FAERS Safety Report 17778823 (Version 1)
Quarter: 2020Q2

REPORT INFORMATION
  Report Type: Spontaneous
  Country: PL (occurrence: PL)
  Receive Date: 20200514
  Receipt Date: 20200514
  Transmission Date: 20200714
  Serious: Yes (Other)
  Sender: FDA-Public Use
  Company Number: PL-ABBVIE-20K-129-3401252-00

PATIENT
  Age: 54 Year
  Sex: Female

DRUGS (10)
  1. RITUXIMAB. [Concomitant]
     Active Substance: RITUXIMAB
     Dosage: SINGLE ADMINISTRATION
     Dates: start: 20200124, end: 20200124
  2. RITUXIMAB. [Concomitant]
     Active Substance: RITUXIMAB
     Dosage: SINGLE ADMINISTRATION
     Dates: start: 20200320, end: 20200320
  3. VENCLYXTO [Suspect]
     Active Substance: VENETOCLAX
     Indication: CHRONIC LYMPHOCYTIC LEUKAEMIA
     Route: 048
     Dates: start: 20191121, end: 20191127
  4. VENCLYXTO [Suspect]
     Active Substance: VENETOCLAX
     Route: 048
     Dates: start: 20191128, end: 20191205
  5. RITUXIMAB. [Concomitant]
     Active Substance: RITUXIMAB
     Dosage: SINGLE ADMINISTRATION
     Dates: start: 20200417, end: 20200417
  6. RITUXIMAB. [Concomitant]
     Active Substance: RITUXIMAB
     Dosage: SINGLE ADMINISTRATION
     Dates: start: 20200221, end: 20200221
  7. VENCLYXTO [Suspect]
     Active Substance: VENETOCLAX
     Route: 048
     Dates: start: 20191213, end: 20191221
  8. RITUXIMAB. [Concomitant]
     Active Substance: RITUXIMAB
     Indication: CHRONIC LYMPHOCYTIC LEUKAEMIA
     Dosage: SINGLE ADMINISTRATION
     Dates: start: 20191227, end: 20191227
  9. VENCLYXTO [Suspect]
     Active Substance: VENETOCLAX
     Route: 048
     Dates: start: 20191206, end: 20191212
  10. VENCLYXTO [Suspect]
     Active Substance: VENETOCLAX
     Route: 048
     Dates: start: 20191222

REACTIONS (2)
  - Transfusion [Unknown]
  - Neutrophil count decreased [Recovered/Resolved]

NARRATIVE: CASE EVENT DATE: 20191128
